FAERS Safety Report 10209182 (Version 2)
Quarter: 2014Q3

REPORT INFORMATION
  Report Type: Spontaneous
  Country: US (occurrence: US)
  Receive Date: 20140530
  Receipt Date: 20140801
  Transmission Date: 20150326
  Serious: Yes (Hospitalization, Other)
  Sender: FDA-Public Use
  Company Number: US-ASTRAZENECA-2014SE35632

PATIENT
  Age: 74 Year
  Sex: Female

DRUGS (7)
  1. BRILINTA [Suspect]
     Active Substance: TICAGRELOR
     Indication: MYOCARDIAL INFARCTION
     Route: 048
  2. BRILINTA [Suspect]
     Active Substance: TICAGRELOR
     Indication: MYOCARDIAL INFARCTION
     Route: 048
     Dates: start: 20140104
  3. STEROID [Concomitant]
     Active Substance: UNSPECIFIED INGREDIENT
     Dosage: 2 STEROID SHOTS
     Dates: start: 2007
  4. BRILINTA [Suspect]
     Active Substance: TICAGRELOR
     Indication: STENT PLACEMENT
     Route: 048
     Dates: start: 20140104
  5. BRILINTA [Suspect]
     Active Substance: TICAGRELOR
     Indication: ACUTE CORONARY SYNDROME
     Route: 048
     Dates: start: 20140104
  6. BRILINTA [Suspect]
     Active Substance: TICAGRELOR
     Indication: STENT PLACEMENT
     Route: 048
  7. BRILINTA [Suspect]
     Active Substance: TICAGRELOR
     Indication: ACUTE CORONARY SYNDROME
     Route: 048

REACTIONS (15)
  - Adverse event [Unknown]
  - Systemic lupus erythematosus [Not Recovered/Not Resolved]
  - Dyspnoea [Unknown]
  - Abdominal infection [Unknown]
  - Renal disorder [Unknown]
  - Pain [Unknown]
  - Contusion [Unknown]
  - Intentional product misuse [Recovered/Resolved]
  - Musculoskeletal discomfort [Unknown]
  - Intervertebral disc protrusion [Unknown]
  - Diarrhoea [Unknown]
  - Scratch [Unknown]
  - Thrombosis [Unknown]
  - Red cell distribution width increased [Unknown]
  - Osteoporosis [Not Recovered/Not Resolved]
